FAERS Safety Report 17415796 (Version 3)
Quarter: 2020Q2

REPORT INFORMATION
  Report Type: Spontaneous
  Country: US (occurrence: US)
  Receive Date: 20200213
  Receipt Date: 20200511
  Transmission Date: 20200713
  Serious: Yes (Hospitalization)
  Sender: FDA-Public Use
  Company Number: US-ACTELION-A-US2020-201641

PATIENT
  Sex: Male
  Weight: 53.97 kg

DRUGS (1)
  1. UPTRAVI [Suspect]
     Active Substance: SELEXIPAG
     Indication: PULMONARY ARTERIAL HYPERTENSION
     Dosage: 1600 MCG, BID
     Route: 048

REACTIONS (5)
  - Blood test abnormal [Unknown]
  - Erythema [Recovered/Resolved]
  - Hospitalisation [Unknown]
  - Overdose [Unknown]
  - Rash [Recovered/Resolved]
